FAERS Safety Report 6394693-X (Version None)
Quarter: 2009Q4

REPORT INFORMATION
  Report Type: 
  Country: None (occurrence: None)
  Receive Date: 20091009
  Receipt Date: 20090928
  Transmission Date: 20100525
  Serious: Yes (Other)
  Sender: FDA-Public Use
  Company Number: PHHY2009AU36405

PATIENT
  Sex: Female
  Weight: 46 kg

DRUGS (7)
  1. ACLASTA [Suspect]
     Indication: OSTEOPOROSIS
     Dosage: UNK
     Dates: start: 20090706
  2. ASPIRIN [Concomitant]
     Indication: GASTROOESOPHAGEAL REFLUX DISEASE
     Dosage: 100 MG
     Route: 048
     Dates: start: 20060101
  3. SOMAC [Concomitant]
     Indication: GASTROOESOPHAGEAL REFLUX DISEASE
     Dosage: 40 MG OD
     Route: 048
     Dates: start: 20060101
  4. FELODIPINE [Concomitant]
     Indication: HYPERTENSION
     Dosage: 2.5 MG OD
     Route: 048
     Dates: start: 20080101
  5. ATACAND [Concomitant]
     Indication: HYPERTENSION
     Dosage: 32 MG OD
     Route: 048
     Dates: start: 20070101
  6. ATENOLOL [Concomitant]
     Indication: HYPERTENSION
     Dosage: 50 MG OD
     Dates: start: 20070101
  7. LIPITOR [Concomitant]
     Indication: BLOOD CHOLESTEROL INCREASED
     Dosage: 20 MG OD
     Dates: start: 20060101

REACTIONS (7)
  - ANTERIOR CHAMBER DISORDER [None]
  - CATARACT [None]
  - INTRAOCULAR PRESSURE INCREASED [None]
  - IRIDOCYCLITIS [None]
  - OCULAR HYPERAEMIA [None]
  - PUPIL FIXED [None]
  - REFRACTION DISORDER [None]
